FAERS Safety Report 4638886-8 (Version None)
Quarter: 2005Q2

REPORT INFORMATION
  Report Type: 
  Country: None (occurrence: None)
  Receive Date: 20050418
  Receipt Date: 20050418
  Transmission Date: 20051028
  Serious: Yes (Hospitalization)
  Sender: FDA-Public Use
  Company Number: None

PATIENT
  Age: 26 Year
  Sex: Female
  Weight: 81.3 kg

DRUGS (2)
  1. NEVIRAPINE [Suspect]
     Indication: HIV INFECTION
     Dosage: 200MG BID ORAL
     Route: 048
     Dates: start: 20050211, end: 20050228
  2. COMBIVIR [Concomitant]

REACTIONS (1)
  - STEVENS-JOHNSON SYNDROME [None]
